FAERS Safety Report 13029817 (Version 1)
Quarter: 2016Q4

REPORT INFORMATION
  Report Type: Spontaneous
  Country: US (occurrence: US)
  Receive Date: 20161214
  Receipt Date: 20161214
  Transmission Date: 20170207
  Serious: Yes (Death)
  Sender: FDA-Public Use
  Company Number: None

PATIENT
  Age: 86 Year
  Sex: Female

DRUGS (1)
  1. METOPROLOL. [Suspect]
     Active Substance: METOPROLOL
     Route: 048
     Dates: start: 20151219

REACTIONS (1)
  - Death [None]
